FAERS Safety Report 18331175 (Version 1)
Quarter: 2020Q3

REPORT INFORMATION
  Report Type: Spontaneous
  Country: ZA (occurrence: ZA)
  Receive Date: 20200930
  Receipt Date: 20200930
  Transmission Date: 20201103
  Serious: Yes (Other)
  Sender: FDA-Public Use
  Company Number: ZA-PFIZER INC-2020375849

PATIENT
  Age: 13 Year
  Sex: Female

DRUGS (4)
  1. METHOTREXATE. [Suspect]
     Active Substance: METHOTREXATE
     Dosage: 7.5 MG
     Dates: start: 20150223
  2. SULFASALAZINE. [Suspect]
     Active Substance: SULFASALAZINE
     Dosage: 500 MG
     Dates: start: 20060103
  3. HYDROXYCHLOROQUINE [Suspect]
     Active Substance: HYDROXYCHLOROQUINE
     Dosage: 60 MG
     Dates: start: 20170509, end: 202009
  4. ENBREL [Concomitant]
     Active Substance: ETANERCEPT
     Dosage: 25 MG, WEEKLY
     Route: 058

REACTIONS (9)
  - Blood alkaline phosphatase increased [Unknown]
  - Blood creatinine decreased [Recovered/Resolved]
  - Haemoglobin decreased [Recovered/Resolved]
  - HLA-B*27 positive [Unknown]
  - C-reactive protein increased [Recovered/Resolved]
  - Toxicity to various agents [Unknown]
  - White blood cell count increased [Recovered/Resolved]
  - Blood alkaline phosphatase decreased [Unknown]
  - Swollen joint count [Recovering/Resolving]

NARRATIVE: CASE EVENT DATE: 20170814
